FAERS Safety Report 18448287 (Version 1)
Quarter: 2020Q4

REPORT INFORMATION
  Report Type: Spontaneous
  Country: US (occurrence: US)
  Receive Date: 20201030
  Receipt Date: 20201030
  Transmission Date: 20210114
  Serious: Yes (Hospitalization)
  Sender: FDA-Public Use
  Company Number: US-MYLANLABS-2020M1090756

PATIENT
  Age: 32 Year
  Sex: Female

DRUGS (1)
  1. HEPARIN [Suspect]
     Active Substance: HEPARIN SODIUM
     Indication: VENOUS THROMBOSIS
     Dosage: INFUSION

REACTIONS (3)
  - Rectal ulcer haemorrhage [Recovered/Resolved]
  - Haemodynamic instability [Unknown]
  - Blood loss anaemia [Recovering/Resolving]
